FAERS Safety Report 23734090 (Version 4)
Quarter: 2025Q1

REPORT INFORMATION
  Report Type: Spontaneous
  Country: US (occurrence: US)
  Receive Date: 20240412
  Receipt Date: 20250116
  Transmission Date: 20250408
  Serious: No
  Sender: SANOFI AVENTIS
  Company Number: US-SA-SAC20240409000177

PATIENT
  Age: 8 Year
  Sex: Male

DRUGS (3)
  1. DUPIXENT [Suspect]
     Active Substance: DUPILUMAB
     Indication: Dermatitis atopic
     Route: 058
     Dates: start: 20240229
  2. DUPIXENT [Suspect]
     Active Substance: DUPILUMAB
     Indication: Dermatitis atopic
     Dosage: 200 MG, QOW
     Route: 058
     Dates: start: 20240314
  3. EUCRISA [Concomitant]
     Active Substance: CRISABOROLE

REACTIONS (9)
  - Scleral pigmentation [Recovered/Resolved]
  - Ocular discomfort [Unknown]
  - Eye swelling [Recovering/Resolving]
  - Skin discolouration [Recovered/Resolved]
  - Visual impairment [Recovered/Resolved]
  - Pruritus [Unknown]
  - Eye pruritus [Not Recovered/Not Resolved]
  - Intraocular pressure increased [Recovered/Resolved]
  - Incorrect dose administered [Unknown]

NARRATIVE: CASE EVENT DATE: 20240101
